FAERS Safety Report 7971871-7 (Version None)
Quarter: 2011Q4

REPORT INFORMATION
  Report Type: 
  Country: None (occurrence: None)
  Receive Date: 20111212
  Receipt Date: 20111202
  Transmission Date: 20120403
  Serious: Yes (Hospitalization)
  Sender: FDA-Public Use
  Company Number: BR-ASTRAZENECA-2011SE73483

PATIENT
  Age: 47 Year
  Sex: Female
  Weight: 68 kg

DRUGS (5)
  1. ALPRAZOLAM [Concomitant]
  2. ROSUVASTATIN CALCIUM [Suspect]
     Indication: HYPERCHOLESTEROLAEMIA
     Route: 048
  3. ENALAPRIL MALEATE [Concomitant]
     Dates: start: 20030101
  4. METFORMIN HCL [Concomitant]
     Dates: start: 20050101
  5. LEVOTHYROXINE SODIUM [Concomitant]
     Dates: start: 20050101

REACTIONS (2)
  - BREAST CANCER FEMALE [None]
  - BREAST CALCIFICATIONS [None]
